FAERS Safety Report 9869383 (Version 1)
Quarter: 2014Q1

REPORT INFORMATION
  Report Type: Spontaneous
  Country: BR (occurrence: BR)
  Receive Date: 20140205
  Receipt Date: 20140205
  Transmission Date: 20141002
  Serious: Yes (Hospitalization)
  Sender: FDA-Public Use
  Company Number: BR-ELI_LILLY_AND_COMPANY-BR201401008892

PATIENT
  Sex: Female
  Weight: 66 kg

DRUGS (7)
  1. CYMBALTA [Suspect]
     Indication: FIBROMYALGIA
     Dosage: 30 MG, QD
     Route: 048
     Dates: start: 2013
  2. CYMBALTA [Suspect]
     Dosage: 60 MG, QD
     Route: 048
  3. CYMBALTA [Suspect]
     Dosage: 90 MG, QD
     Route: 048
  4. CYMBALTA [Suspect]
     Dosage: 120 MG, QD
     Route: 048
  5. LYRICA [Suspect]
     Indication: FIBROMYALGIA
     Dosage: UNK
     Route: 065
     Dates: start: 2013
  6. LYRICA [Suspect]
     Dosage: 225 MG, QD
     Route: 065
  7. LYRICA [Suspect]
     Dosage: 150 MG, QD
     Route: 065

REACTIONS (5)
  - Lobular breast carcinoma in situ [Unknown]
  - Memory impairment [Not Recovered/Not Resolved]
  - Libido disorder [Not Recovered/Not Resolved]
  - Constipation [Not Recovered/Not Resolved]
  - Dry mouth [Not Recovered/Not Resolved]
